FAERS Safety Report 5501006-1 (Version None)
Quarter: 2007Q4

REPORT INFORMATION
  Report Type: 
  Country: None (occurrence: None)
  Receive Date: 20071029
  Receipt Date: 20071015
  Transmission Date: 20080405
  Serious: Yes (Hospitalization)
  Sender: FDA-Public Use
  Company Number: CA-SHR-CA-2007-027536

PATIENT
  Age: 52 Year
  Sex: Male
  Weight: 83 kg

DRUGS (3)
  1. BETASERON [Suspect]
     Indication: RELAPSING-REMITTING MULTIPLE SCLEROSIS
     Dosage: 8 MIU, EVERY 2D
     Route: 058
     Dates: start: 19980508, end: 20070702
  2. OXYBUTYNIN CHLORIDE [Concomitant]
     Dosage: 1 TAB(S), UNK
     Route: 048
  3. SYMMETREL [Concomitant]
     Indication: PARKINSON'S DISEASE
     Dosage: 1 TAB(S), UNK
     Route: 048

REACTIONS (3)
  - COLON CANCER [None]
  - MULTIPLE SCLEROSIS [None]
  - VERTIGO [None]
